FAERS Safety Report 25535816 (Version 3)
Quarter: 2025Q3

REPORT INFORMATION
  Report Type: Spontaneous
  Country: JP (occurrence: JP)
  Receive Date: 20250709
  Receipt Date: 20250912
  Transmission Date: 20251021
  Serious: Yes (Hospitalization, Other)
  Sender: CATALYST PHARMA
  Company Number: JP-CATALYSTPHARMACEUTICALPARTNERS-JP-CATA-25-00978

PATIENT
  Age: 67 Year
  Sex: Female

DRUGS (10)
  1. FYCOMPA [Suspect]
     Active Substance: PERAMPANEL
     Indication: Product used for unknown indication
     Route: 048
  2. FYCOMPA [Suspect]
     Active Substance: PERAMPANEL
     Dosage: 4.0 MILLIGRAM(S) (4 MILLIGRAM(S), 1 IN 1 DAY)
     Route: 048
     Dates: start: 202502, end: 20250520
  3. FYCOMPA [Suspect]
     Active Substance: PERAMPANEL
     Route: 048
     Dates: start: 20250521, end: 20250527
  4. DAYVIGO [Concomitant]
     Active Substance: LEMBOREXANT
     Indication: Product used for unknown indication
     Dosage: 5.0 MILLIGRAM(S) (5 MILLIGRAM(S), 1 IN 1 DAY)
     Route: 048
  5. HERBALS [Concomitant]
     Active Substance: HERBALS
     Indication: Product used for unknown indication
     Dosage: 22.5 GRAM(S) (7.5 GRAM(S), 1 IN 8 HOUR)
     Route: 065
  6. VALPROATE SODIUM [Concomitant]
     Active Substance: VALPROATE SODIUM
     Indication: Product used for unknown indication
     Dosage: 400.0 MILLIGRAM(S) (200 MILLIGRAM(S), 1 IN 12 HOUR)
     Route: 048
  7. VALPROATE SODIUM [Concomitant]
     Active Substance: VALPROATE SODIUM
     Dosage: 400.0 MILLIGRAM(S) (200 MILLIGRAM(S), 1 IN 12 HOUR)
     Route: 048
     Dates: end: 20250515
  8. VALPROATE SODIUM [Concomitant]
     Active Substance: VALPROATE SODIUM
     Dosage: 800.0 MILLIGRAM(S) (400 MILLIGRAM(S), 1 IN 12 HOUR)
     Route: 048
     Dates: start: 20250516, end: 20250520
  9. VALPROATE SODIUM [Concomitant]
     Active Substance: VALPROATE SODIUM
     Dosage: 1600 MILLIGRAM(S) (800 MILLIGRAM(S), 1 IN 12 HOUR)
     Route: 048
     Dates: start: 20250521, end: 20250603
  10. VALPROATE SODIUM [Concomitant]
     Active Substance: VALPROATE SODIUM
     Dosage: 800.0 MILLIGRAM(S) (400 MILLIGRAM(S), 1 IN 12 HOUR)
     Route: 048
     Dates: start: 20250604

REACTIONS (5)
  - Psychotic disorder due to a general medical condition [Recovering/Resolving]
  - Seizure [Unknown]
  - Anticonvulsant drug level increased [Recovered/Resolved]
  - Nocturia [Unknown]
  - Irregular sleep wake rhythm disorder [Unknown]

NARRATIVE: CASE EVENT DATE: 20250201
